FAERS Safety Report 7313954-0 (Version None)
Quarter: 2011Q1

REPORT INFORMATION
  Report Type: 
  Country: None (occurrence: None)
  Receive Date: 20110225
  Receipt Date: 20110211
  Transmission Date: 20110831
  Serious: Yes (Hospitalization, Disabling)
  Sender: FDA-Public Use
  Company Number: PHHY2011AU08635

PATIENT
  Sex: Male

DRUGS (7)
  1. CLOZARIL [Suspect]
     Indication: SCHIZOPHRENIA
     Dosage: UNK
     Route: 048
     Dates: start: 19980101
  2. CLOZARIL [Suspect]
     Dosage: 300 MG
     Route: 048
  3. CLOZARIL [Suspect]
     Dosage: 100 MG
     Dates: start: 20110124
  4. CLOZARIL [Suspect]
     Dosage: UNK
     Route: 048
     Dates: start: 20110210
  5. OLANZAPINE [Concomitant]
     Indication: SCHIZOPHRENIA
     Dosage: 20 MG
     Route: 048
     Dates: start: 20110127
  6. CLOZARIL [Suspect]
     Dosage: 400 MG
     Route: 048
     Dates: start: 20020101
  7. CLOZARIL [Suspect]
     Dosage: 100 MG
     Route: 048
     Dates: start: 20020429

REACTIONS (15)
  - MONOCYTE COUNT INCREASED [None]
  - MUSCULOSKELETAL STIFFNESS [None]
  - THINKING ABNORMAL [None]
  - AGGRESSION [None]
  - MENTAL IMPAIRMENT [None]
  - PARANOIA [None]
  - PHYSICAL ASSAULT [None]
  - MUSCLE RIGIDITY [None]
  - PYREXIA [None]
  - AGITATION [None]
  - BLOOD CREATINE PHOSPHOKINASE INCREASED [None]
  - NEUTROPHIL COUNT INCREASED [None]
  - ERYTHEMA [None]
  - NEUROLEPTIC MALIGNANT SYNDROME [None]
  - ABNORMAL BEHAVIOUR [None]
